FAERS Safety Report 5908321-8 (Version None)
Quarter: 2008Q4

REPORT INFORMATION
  Report Type: 
  Country: None (occurrence: None)
  Receive Date: 20081006
  Receipt Date: 20080925
  Transmission Date: 20090506
  Serious: Yes (Life-Threatening, Hospitalization)
  Sender: FDA-Public Use
  Company Number: DK-BRISTOL-MYERS SQUIBB COMPANY-14355655

PATIENT
  Age: 67 Year
  Sex: Female

DRUGS (3)
  1. ENDOXAN [Suspect]
     Indication: BREAST CANCER
     Route: 042
     Dates: start: 20060405, end: 20061006
  2. EPIRUBICIN [Suspect]
     Indication: BREAST CANCER
     Route: 065
     Dates: start: 20060405, end: 20061006
  3. FLUOROURACIL [Suspect]
     Indication: BREAST CANCER
     Route: 065
     Dates: start: 20060405, end: 20061006

REACTIONS (1)
  - ACUTE MYELOID LEUKAEMIA [None]
